FAERS Safety Report 24953563 (Version 1)
Quarter: 2025Q1

REPORT INFORMATION
  Report Type: Spontaneous
  Country: CA (occurrence: None)
  Receive Date: 20250211
  Receipt Date: 20250211
  Transmission Date: 20250409
  Serious: Yes (Life-Threatening)
  Sender: ADIENNE PHARMA & BIOTECH
  Company Number: None

PATIENT
  Age: 6 Year
  Sex: Female
  Weight: 28 kg

DRUGS (24)
  1. THIOTEPA [Suspect]
     Active Substance: THIOTEPA
     Indication: Acute myeloid leukaemia
     Route: 042
  2. BUSULFAN [Suspect]
     Active Substance: BUSULFAN
     Indication: Acute myeloid leukaemia
     Route: 042
  3. FLUDARABINE [Suspect]
     Active Substance: FLUDARABINE PHOSPHATE
     Indication: Acute myeloid leukaemia
     Route: 042
  4. THYMOCYTE IMMUNE GLOBULIN NOS [Concomitant]
     Active Substance: THYMOCYTE IMMUNE GLOBULIN NOS
  5. AMLODIPINE [Concomitant]
     Active Substance: AMLODIPINE BESYLATE
  6. CALCIUM CARBONATE [Concomitant]
     Active Substance: CALCIUM CARBONATE
  7. CHOLECALCIFEROL [Concomitant]
     Active Substance: CHOLECALCIFEROL
  8. CYCLOSPORINE [Concomitant]
     Active Substance: CYCLOSPORINE
  9. DEXAMETHASONE [Concomitant]
     Active Substance: DEXAMETHASONE
  10. FLUCONAZOLE [Concomitant]
     Active Substance: FLUCONAZOLE
  11. FOSCARNET SODIUM [Concomitant]
     Active Substance: FOSCARNET SODIUM
     Route: 042
  12. FUROSEMIDE [Concomitant]
     Active Substance: FUROSEMIDE
  13. LEVETIRACETAM [Concomitant]
     Active Substance: LEVETIRACETAM
  14. LORAZEPAM [Concomitant]
     Active Substance: LORAZEPAM
  15. MAGNESIUM SULFATE [Concomitant]
     Active Substance: MAGNESIUM SULFATE
  16. METHYLPREDNISOLONE [Concomitant]
     Active Substance: METHYLPREDNISOLONE
  17. MYCAMINE [Concomitant]
     Active Substance: MICAFUNGIN SODIUM
  18. MYCOPHENOLATE MOFETIL [Concomitant]
     Active Substance: MYCOPHENOLATE MOFETIL
  19. OLANZAPINE [Concomitant]
     Active Substance: OLANZAPINE
  20. ONDANSETRON [Concomitant]
     Active Substance: ONDANSETRON
  21. PREVYMIS [Concomitant]
     Active Substance: LETERMOVIR
  22. SULFAMETHOXAZOLE\TRIMETHOPRIM [Concomitant]
     Active Substance: SULFAMETHOXAZOLE\TRIMETHOPRIM
  23. URSODIOL [Concomitant]
     Active Substance: URSODIOL
  24. VANCOMYCIN [Concomitant]
     Active Substance: VANCOMYCIN

REACTIONS (4)
  - Aplastic anaemia [Unknown]
  - Febrile neutropenia [Unknown]
  - Mucosal inflammation [Unknown]
  - Transfusion [Unknown]
